FAERS Safety Report 6240535-2 (Version None)
Quarter: 2009Q2

REPORT INFORMATION
  Report Type: 
  Country: None (occurrence: None)
  Receive Date: 20090623
  Receipt Date: 20080903
  Transmission Date: 20091009
  Serious: No
  Sender: FDA-Public Use
  Company Number: US-ASTRAZENECA-2008UW18005

PATIENT
  Age: 83 Year
  Sex: Male

DRUGS (1)
  1. PULMICORT-100 [Suspect]
     Route: 055

REACTIONS (1)
  - FAECAL INCONTINENCE [None]
